FAERS Safety Report 5157661-1 (Version None)
Quarter: 2006Q4

REPORT INFORMATION
  Report Type: 
  Country: None (occurrence: None)
  Receive Date: 20061127
  Receipt Date: 20060928
  Transmission Date: 20070319
  Serious: Yes (Death)
  Sender: FDA-Public Use
  Company Number: FR-NOVOPROD-257368

PATIENT
  Age: 59 Year
  Sex: Male

DRUGS (1)
  1. NOVOSEVEN [Suspect]
     Dosage: 7.2 MG, BID
     Route: 042
     Dates: start: 20060610, end: 20060610

REACTIONS (1)
  - MYOCARDIAL INFARCTION [None]
